FAERS Safety Report 6354705-6 (Version None)
Quarter: 2009Q3

REPORT INFORMATION
  Report Type: 
  Country: None (occurrence: None)
  Receive Date: 20090914
  Receipt Date: 20090909
  Transmission Date: 20100115
  Serious: Yes (Hospitalization)
  Sender: FDA-Public Use
  Company Number: US-ELI_LILLY_AND_COMPANY-US200908004613

PATIENT
  Sex: Male

DRUGS (1)
  1. HUMALOG [Suspect]
     Route: 058
     Dates: start: 20040101

REACTIONS (2)
  - DRUG DOSE OMISSION [None]
  - GLYCOSYLATED HAEMOGLOBIN INCREASED [None]
